FAERS Safety Report 5004170-6 (Version None)
Quarter: 2006Q2

REPORT INFORMATION
  Report Type: 
  Country: None (occurrence: None)
  Receive Date: 20060517
  Receipt Date: 20060510
  Transmission Date: 20061013
  Serious: Yes (Hospitalization, Other)
  Sender: FDA-Public Use
  Company Number: JP-JNJFOC-20060405204

PATIENT
  Sex: Female

DRUGS (2)
  1. TAVANIC [Suspect]
     Route: 048
  2. TAVANIC [Suspect]
     Indication: PROPHYLAXIS
     Route: 048

REACTIONS (2)
  - ELECTROLYTE IMBALANCE [None]
  - GRAND MAL CONVULSION [None]
